FAERS Safety Report 5131926-1 (Version None)
Quarter: 2006Q4

REPORT INFORMATION
  Report Type: 
  Country: None (occurrence: None)
  Receive Date: 20061016
  Receipt Date: 20061003
  Transmission Date: 20070319
  Serious: Yes (Other)
  Sender: FDA-Public Use
  Company Number: 2006096048

PATIENT
  Age: 58 Year
  Sex: Female
  Weight: 69.8539 kg

DRUGS (2)
  1. LIPITOR [Suspect]
     Indication: HYPERLIPIDAEMIA
     Dosage: 20 MG (20 MG), ORAL
     Route: 048
     Dates: end: 20040101
  2. LISINOPRIL [Concomitant]

REACTIONS (3)
  - BLOOD CREATININE INCREASED [None]
  - FEELING ABNORMAL [None]
  - HYPONATRAEMIA [None]
